FAERS Safety Report 17924069 (Version 1)
Quarter: 2020Q2

REPORT INFORMATION
  Report Type: Spontaneous
  Country: BR (occurrence: BR)
  Receive Date: 20200622
  Receipt Date: 20200622
  Transmission Date: 20200714
  Serious: Yes (Other)
  Sender: FDA-Public Use
  Company Number: BR-JNJFOC-20200623266

PATIENT
  Sex: Male

DRUGS (2)
  1. NEBIDO [Suspect]
     Active Substance: TESTOSTERONE UNDECANOATE
     Route: 030
  2. RIVAROXABAN [Suspect]
     Active Substance: RIVAROXABAN
     Indication: MYOCARDIAL INFARCTION
     Dosage: 1 DF, CONT
     Route: 048

REACTIONS (3)
  - Myocardial infarction [Unknown]
  - Off label use [Unknown]
  - Product use in unapproved indication [Unknown]
